FAERS Safety Report 5429249-6 (Version None)
Quarter: 2007Q3

REPORT INFORMATION
  Report Type: 
  Country: None (occurrence: None)
  Receive Date: 20070824
  Receipt Date: 20070810
  Transmission Date: 20080115
  Serious: Yes (Other)
  Sender: FDA-Public Use
  Company Number: 2007JP003807

PATIENT
  Sex: Female

DRUGS (1)
  1. VESICARE [Suspect]
     Indication: NOCTURIA
     Dosage: 5 MG, D, ORAL
     Route: 048
     Dates: end: 20070101

REACTIONS (1)
  - URINARY BLADDER RUPTURE [None]
